FAERS Safety Report 8963293 (Version 1)
Quarter: 2012Q4

REPORT INFORMATION
  Report Type: Report from Study
  Country: ES (occurrence: ES)
  Receive Date: 20121213
  Receipt Date: 20121213
  Transmission Date: 20130627
  Serious: Yes (Hospitalization)
  Sender: FDA-Public Use
  Company Number: ES-PFIZER INC-2012309988

PATIENT
  Age: 60 Year
  Sex: Female
  Weight: 71 kg

DRUGS (10)
  1. GENOTROPIN [Suspect]
     Dosage: 0.4 mg, 1x/day,7 injections/week.
     Route: 058
     Dates: start: 20000918
  2. BISOPROLOL [Concomitant]
     Indication: MIGRAINE
     Dosage: UNK
     Dates: start: 19991215
  3. HYDROCORTISONE ACETATE [Concomitant]
     Indication: ACTH DECREASED
     Dosage: UNK
     Dates: start: 20000215
  4. PREVENCOR [Concomitant]
     Indication: PURE HYPERCHOLESTEROLAEMIA
     Dosage: UNK
     Dates: start: 20020208
  5. GABAPENTIN [Concomitant]
     Indication: MIGRAINE
     Dosage: UNK
     Dates: start: 20020707
  6. TRAMADOL [Concomitant]
     Indication: MIGRAINE
     Dosage: UNK
     Dates: start: 20020802
  7. CITALOPRAM [Concomitant]
     Indication: DEPRESSIVE DISORDER
     Dosage: UNK
     Dates: start: 19991215
  8. ATORVASTATIN [Concomitant]
     Indication: HYPERCHOLESTERAEMIA
     Dosage: UNK
     Dates: start: 20000315
  9. MORPHINE [Concomitant]
     Indication: MIGRAINE
     Dosage: UNK
     Dates: start: 20030825
  10. PLANTAGO OVATA DAV [Concomitant]
     Indication: CONSTIPATION
     Dosage: UNK
     Dates: start: 20030825

REACTIONS (1)
  - Pericardial haemorrhage [Unknown]
